FAERS Safety Report 18756862 (Version 2)
Quarter: 2021Q1

REPORT INFORMATION
  Report Type: Spontaneous
  Country: US (occurrence: US)
  Receive Date: 20210119
  Receipt Date: 20210224
  Transmission Date: 20210419
  Serious: No
  Sender: FDA-Public Use
  Company Number: US-PFIZER INC-2021029045

PATIENT
  Age: 46 Year
  Sex: Female

DRUGS (1)
  1. XELJANZ XR [Suspect]
     Active Substance: TOFACITINIB CITRATE
     Indication: RHEUMATOID ARTHRITIS
     Dosage: 11 MG, DAILY
     Route: 048
     Dates: start: 202012

REACTIONS (6)
  - Arthralgia [Recovering/Resolving]
  - Discouragement [Unknown]
  - Product dose omission issue [Unknown]
  - Nausea [Unknown]
  - Pain [Unknown]
  - Depressed mood [Unknown]
